FAERS Safety Report 9182055 (Version 1)
Quarter: 2013Q1

REPORT INFORMATION
  Report Type: Spontaneous
  Country: US (occurrence: None)
  Receive Date: 20120621
  Receipt Date: 20120621
  Transmission Date: 20140127
  Serious: Yes (Other)
  Sender: FDA-Public Use
  Company Number: 037894

PATIENT
  Sex: Female
  Weight: 68 kg

DRUGS (4)
  1. CIMZIA [Suspect]
     Indication: RHEUMATOID ARTHRITIS
     Route: 058
     Dates: start: 201001
  2. LISINOPRIL [Suspect]
     Route: 048
     Dates: start: 20110727
  3. CYMBALTA [Concomitant]
  4. VALTRRX [Concomitant]

REACTIONS (2)
  - Hypertension [None]
  - Rash [None]
